FAERS Safety Report 12248378 (Version 2)
Quarter: 2016Q2

REPORT INFORMATION
  Report Type: Report from Study
  Country: US (occurrence: US)
  Receive Date: 20160408
  Receipt Date: 20160615
  Transmission Date: 20160815
  Serious: No
  Sender: FDA-Public Use
  Company Number: PHEH2016US008531

PATIENT
  Sex: Female

DRUGS (1)
  1. AFINITOR [Suspect]
     Active Substance: EVEROLIMUS
     Indication: SMALL INTESTINE CARCINOMA
     Dosage: 10 MG, QD
     Route: 048
     Dates: start: 20160322

REACTIONS (3)
  - Oral pain [Recovering/Resolving]
  - Rash [Recovering/Resolving]
  - Nail disorder [Not Recovered/Not Resolved]
